FAERS Safety Report 4551460-7 (Version None)
Quarter: 2005Q1

REPORT INFORMATION
  Report Type: 
  Country: None (occurrence: None)
  Receive Date: 20050107
  Receipt Date: 20041222
  Transmission Date: 20050727
  Serious: Yes (Life-Threatening)
  Sender: FDA-Public Use
  Company Number: S04-FIN-08291-01

PATIENT
  Age: 78 Year
  Sex: Female

DRUGS (5)
  1. CIPRAMIL(CITALOPRAM HYDROBROMIDE) [Suspect]
     Indication: DEPRESSION
     Dosage: 10 MG QD PO
     Route: 048
     Dates: start: 20041203, end: 20041213
  2. MICARDIS [Concomitant]
  3. HYDREX (HYDROCHLOROTHIAZIDE) [Concomitant]
  4. EXELON [Concomitant]
  5. AMARYL [Concomitant]

REACTIONS (4)
  - CONFUSIONAL STATE [None]
  - DIZZINESS [None]
  - HYPONATRAEMIA [None]
  - NAUSEA [None]
